FAERS Safety Report 4799016-5 (Version None)
Quarter: 2005Q4

REPORT INFORMATION
  Report Type: 
  Country: None (occurrence: None)
  Receive Date: 20051013
  Receipt Date: 20050929
  Transmission Date: 20060501
  Serious: Yes (Death, Other)
  Sender: FDA-Public Use
  Company Number: WAES 0510USA00148

PATIENT
  Sex: Male

DRUGS (8)
  1. DECADRON [Suspect]
     Indication: PROPHYLAXIS
     Dosage: 20 MG/PO
     Route: 048
  2. PACLITAXEL [Suspect]
     Indication: TESTICULAR GERM CELL CANCER
     Dosage: 250 MG/M[2]/IV
     Route: 042
  3. IFOSFAMIDE [Suspect]
     Indication: TESTICULAR GERM CELL CANCER
     Dosage: 1500MG/M [2]/DAILY/IV
     Route: 042
  4. CISPLATIN [Suspect]
     Indication: TESTICULAR GERM CELL CANCER
     Dosage: 25 MG/M [2]/DAILY/IV
     Route: 042
  5. MESNA [Suspect]
     Indication: TESTICULAR GERM CELL CANCER
     Dosage: 1500 MG/M [2]/DAILY/IV
     Route: 042
  6. DIPHENHYDRAMINE HCL [Suspect]
     Indication: PROPHYLAXIS
     Dosage: 50 MG/IV
     Route: 042
  7. CIMETIDINE [Suspect]
     Indication: PROPHYLAXIS
     Dosage: 300 MG/IV
     Route: 042
  8. GRANULOCYTE COLONY SITMULATING FUNK [Concomitant]

REACTIONS (4)
  - MULTI-ORGAN FAILURE [None]
  - NEPHROPATHY TOXIC [None]
  - NEUTROPENIC SEPSIS [None]
  - RENAL FAILURE ACUTE [None]
